FAERS Safety Report 26127999 (Version 1)
Quarter: 2025Q4

REPORT INFORMATION
  Report Type: Spontaneous
  Country: US (occurrence: US)
  Receive Date: 20251206
  Receipt Date: 20251206
  Transmission Date: 20260117
  Serious: Yes (Hospitalization)
  Sender: AMGEN
  Company Number: US-AMGEN-USASP2025237747

PATIENT
  Age: 57 Year
  Sex: Female

DRUGS (3)
  1. PREDNISONE [Suspect]
     Active Substance: PREDNISONE
     Indication: Renal transplant
     Dosage: 5 MILLIGRAM, QD
     Route: 065
     Dates: start: 2024
  2. TACROLIMUS [Concomitant]
     Active Substance: TACROLIMUS
     Indication: Renal transplant
     Dosage: UNK
     Dates: start: 2024
  3. MYCOPHENOLATE MOFETIL [Concomitant]
     Active Substance: MYCOPHENOLATE MOFETIL
     Indication: Renal transplant
     Dosage: UNK
     Dates: start: 2024

REACTIONS (5)
  - Disseminated nocardiosis [Unknown]
  - Adrenal gland abscess [Unknown]
  - Hirsutism [Unknown]
  - Skin striae [Unknown]
  - Blood corticotrophin increased [Recovered/Resolved]

NARRATIVE: CASE EVENT DATE: 20240101
